FAERS Safety Report 14993490 (Version 5)
Quarter: 2024Q4

REPORT INFORMATION
  Report Type: Spontaneous
  Country: FR (occurrence: FR)
  Receive Date: 20180610
  Receipt Date: 20241016
  Transmission Date: 20250115
  Serious: Yes (Other)
  Sender: AUROBINDO
  Company Number: None

PATIENT
  Age: 36 Year
  Sex: Female

DRUGS (10)
  1. AMOXICILLIN [Suspect]
     Active Substance: AMOXICILLIN
     Indication: Retinal detachment
     Dosage: UNK
     Route: 065
  2. AMOXICILLIN [Suspect]
     Active Substance: AMOXICILLIN
     Indication: Antibiotic therapy
  3. PEMBROLIZUMAB [Suspect]
     Active Substance: PEMBROLIZUMAB
     Indication: Metastases to adrenals
     Dosage: 200 MG, QW3
     Route: 065
     Dates: start: 201603
  4. PEMBROLIZUMAB [Suspect]
     Active Substance: PEMBROLIZUMAB
     Indication: Acinic cell carcinoma of salivary gland
     Dosage: UNK 13TH INJECTION
     Route: 065
     Dates: start: 201612
  5. PEMBROLIZUMAB [Suspect]
     Active Substance: PEMBROLIZUMAB
     Indication: Metastatic neoplasm
  6. PEMBROLIZUMAB [Suspect]
     Active Substance: PEMBROLIZUMAB
     Indication: Metastases to lung
  7. FUNGIZONE [Suspect]
     Active Substance: AMPHOTERICIN B
     Indication: Oral candidiasis
     Dosage: UNK
     Route: 062
  8. LAPATINIB [Suspect]
     Active Substance: LAPATINIB
     Indication: Adenocarcinoma
     Dosage: UNK
     Route: 065
  9. LAPATINIB [Suspect]
     Active Substance: LAPATINIB
     Indication: Metastases to lung
  10. LAPATINIB [Suspect]
     Active Substance: LAPATINIB
     Indication: Metastases to adrenals

REACTIONS (11)
  - Sjogren^s syndrome [Recovering/Resolving]
  - Dry eye [Recovering/Resolving]
  - Retinal detachment [Unknown]
  - Myopia [Recovering/Resolving]
  - Oral candidiasis [Unknown]
  - Conjunctival hyperaemia [Recovering/Resolving]
  - Dry mouth [Recovering/Resolving]
  - Rash [Recovering/Resolving]
  - Malignant neoplasm progression [Unknown]
  - Metastases to adrenals [Unknown]
  - Product use in unapproved indication [Unknown]

NARRATIVE: CASE EVENT DATE: 20160301
